FAERS Safety Report 24953189 (Version 3)
Quarter: 2025Q1

REPORT INFORMATION
  Report Type: Report from Study
  Country: US (occurrence: US)
  Receive Date: 20250211
  Receipt Date: 20250319
  Transmission Date: 20250408
  Serious: Yes (Hospitalization, Other)
  Sender: UCB
  Company Number: US-UCBSA-2025005900

PATIENT
  Age: 73 Year
  Sex: Female

DRUGS (1)
  1. ROZANOLIXIZUMAB [Suspect]
     Active Substance: ROZANOLIXIZUMAB
     Indication: Myasthenia gravis
     Dosage: 560 MILLIGRAM, WEEKLY (QW)
     Dates: start: 20250113

REACTIONS (6)
  - Diverticulitis [Unknown]
  - Myasthenia gravis [Recovered/Resolved with Sequelae]
  - Migraine [Recovered/Resolved]
  - Cough [Recovered/Resolved with Sequelae]
  - Bronchitis [Recovered/Resolved with Sequelae]
  - Irritable bowel syndrome [Unknown]

NARRATIVE: CASE EVENT DATE: 20250113
